FAERS Safety Report 9330714 (Version 1)
Quarter: 2013Q2

REPORT INFORMATION
  Report Type: Spontaneous
  Country: US (occurrence: US)
  Receive Date: 20130605
  Receipt Date: 20130605
  Transmission Date: 20140414
  Serious: Yes (Other)
  Sender: FDA-Public Use
  Company Number: US-JNJFOC-20130514635

PATIENT
  Age: 35 Year
  Sex: Female
  Weight: 59.88 kg

DRUGS (1)
  1. ORTHO TRI-CYCLEN LO [Suspect]
     Indication: CONTRACEPTION
     Route: 048
     Dates: start: 2011

REACTIONS (2)
  - Suspected counterfeit product [Unknown]
  - Metrorrhagia [Not Recovered/Not Resolved]
